FAERS Safety Report 7627318-3 (Version None)
Quarter: 2011Q3

REPORT INFORMATION
  Report Type: 
  Country: None (occurrence: None)
  Receive Date: 20110721
  Receipt Date: 20110713
  Transmission Date: 20111222
  Serious: Yes (Other)
  Sender: FDA-Public Use
  Company Number: US-ABBOTT-11P-163-0834367-00

PATIENT
  Sex: Male
  Weight: 64.468 kg

DRUGS (17)
  1. UNKNOWN CHEMOTHERAPY [Suspect]
     Dates: start: 20091201, end: 20100401
  2. PREDNISONE [Concomitant]
     Indication: RHEUMATOID ARTHRITIS
  3. CELEBREX [Concomitant]
     Indication: RHEUMATOID ARTHRITIS
  4. ALTACE [Concomitant]
     Indication: HYPERTENSION
  5. CALCIUM CARBONATE [Concomitant]
     Indication: OSTEOPOROSIS
  6. PLAQUENIL [Concomitant]
     Indication: RHEUMATOID ARTHRITIS
  7. PLAVIX [Concomitant]
     Indication: THROMBOSIS PROPHYLAXIS
  8. MULTI-VITAMINS [Concomitant]
     Indication: PRODUCT USED FOR UNKNOWN INDICATION
  9. UNKNOWN CHEMOTHERAPY [Suspect]
     Indication: PRODUCT USED FOR UNKNOWN INDICATION
     Dates: start: 20091001, end: 20091001
  10. SULFASALAZINE [Concomitant]
     Indication: RHEUMATOID ARTHRITIS
  11. ACTONEL [Concomitant]
     Indication: OSTEOPOROSIS
  12. PREVACID [Concomitant]
     Indication: ANTACID THERAPY
  13. HUMIRA [Suspect]
     Indication: RHEUMATOID ARTHRITIS
     Dates: start: 20060919, end: 20090701
  14. WELLBUTRIN [Concomitant]
     Indication: DEPRESSION
  15. TARCEVA [Concomitant]
     Indication: LUNG NEOPLASM MALIGNANT
  16. LIPITOR [Concomitant]
     Indication: BLOOD CHOLESTEROL INCREASED
  17. TARCEVA [Concomitant]
     Indication: PROPHYLAXIS

REACTIONS (6)
  - NON-SMALL CELL LUNG CANCER STAGE II [None]
  - CLOSTRIDIUM DIFFICILE COLITIS [None]
  - GASTROINTESTINAL HAEMORRHAGE [None]
  - TENDON RUPTURE [None]
  - COLITIS ISCHAEMIC [None]
  - WEIGHT DECREASED [None]
